FAERS Safety Report 13512980 (Version 1)
Quarter: 2017Q2

REPORT INFORMATION
  Report Type: Spontaneous
  Country: US (occurrence: US)
  Receive Date: 20170504
  Receipt Date: 20170504
  Transmission Date: 20170830
  Serious: Yes (Other)
  Sender: FDA-Public Use
  Company Number: US-BEH-2017079938

PATIENT
  Age: 78 Year
  Sex: Male

DRUGS (1)
  1. HUMAN IMMUNOGLOBULIN IV (INN) [Suspect]
     Active Substance: HUMAN IMMUNOGLOBULIN G
     Indication: IMMUNODEFICIENCY COMMON VARIABLE
     Dosage: 1100 MG/KG, BIW HIGH DOSE
     Route: 042

REACTIONS (4)
  - Asthenia [Unknown]
  - Mental status changes [Unknown]
  - Hepatic angiosarcoma [Unknown]
  - Hyperammonaemic encephalopathy [Unknown]
